FAERS Safety Report 8796614 (Version 1)
Quarter: 2012Q4

REPORT INFORMATION
  Report Type: 
  Country: DK (occurrence: DK)
  Receive Date: 20120919
  Receipt Date: 20120919
  Transmission Date: 20130627
  Serious: Yes (Other)
  Sender: FDA-Public Use
  Company Number: DK-MERCK-1209DNK007820

PATIENT
  Age: 66 Year
  Sex: Male

DRUGS (4)
  1. REBETOL [Suspect]
     Indication: HEPATITIS C
  2. PEGINTRON [Suspect]
     Indication: HEPATITIS C
  3. PEGASYS [Suspect]
     Indication: HEPATITIS C
  4. TELAPREVIR [Suspect]
     Indication: HEPATITIS C

REACTIONS (1)
  - Depression [Not Recovered/Not Resolved]
